FAERS Safety Report 20326965 (Version 1)
Quarter: 2022Q1

REPORT INFORMATION
  Report Type: Spontaneous
  Country: US (occurrence: None)
  Receive Date: 20220111
  Receipt Date: 20220111
  Transmission Date: 20220423
  Serious: No
  Sender: FDA-Public Use
  Company Number: None

PATIENT
  Age: 81 Year
  Sex: Male

DRUGS (1)
  1. TOBRAMYCIN [Suspect]
     Active Substance: TOBRAMYCIN
     Dosage: 1 AMPULE BID NASAL?
     Route: 045
     Dates: start: 20220111

REACTIONS (9)
  - Wheezing [None]
  - Headache [None]
  - Abdominal discomfort [None]
  - Oropharyngeal pain [None]
  - Dyspepsia [None]
  - Heart rate increased [None]
  - Dyspepsia [None]
  - Oxygen saturation abnormal [None]
  - Wrong technique in device usage process [None]

NARRATIVE: CASE EVENT DATE: 20220111
